FAERS Safety Report 9314333 (Version 22)
Quarter: 2015Q2

REPORT INFORMATION
  Report Type: Spontaneous
  Country: CA (occurrence: CA)
  Receive Date: 20130529
  Receipt Date: 20150615
  Transmission Date: 20150821
  Serious: Yes (Hospitalization, Other)
  Sender: FDA-Public Use
  Company Number: CA-ROCHE-1229052

PATIENT
  Age: 80 Year
  Sex: Male
  Weight: 65 kg

DRUGS (20)
  1. XOLAIR [Suspect]
     Active Substance: OMALIZUMAB
     Route: 058
     Dates: start: 20140226
  2. XOLAIR [Suspect]
     Active Substance: OMALIZUMAB
     Route: 058
     Dates: start: 20141118
  3. ALVESCO [Concomitant]
     Active Substance: CICLESONIDE
  4. COUMARIN [Concomitant]
     Active Substance: COUMARIN
  5. PREDNISONE. [Concomitant]
     Active Substance: PREDNISONE
  6. FUROSEMIDE. [Concomitant]
     Active Substance: FUROSEMIDE
  7. XOLAIR [Suspect]
     Active Substance: OMALIZUMAB
     Route: 058
     Dates: start: 20140506
  8. VENTOLIN [Concomitant]
     Active Substance: ALBUTEROL SULFATE
  9. XOLAIR [Suspect]
     Active Substance: OMALIZUMAB
     Route: 058
     Dates: start: 20131217
  10. XOLAIR [Suspect]
     Active Substance: OMALIZUMAB
     Route: 058
     Dates: start: 20130521
  11. XOLAIR [Suspect]
     Active Substance: OMALIZUMAB
     Indication: ASTHMA
     Route: 058
     Dates: start: 20130121
  12. XOLAIR [Suspect]
     Active Substance: OMALIZUMAB
     Route: 058
     Dates: start: 20131230
  13. XOLAIR [Suspect]
     Active Substance: OMALIZUMAB
     Route: 058
     Dates: start: 20140422
  14. XOLAIR [Suspect]
     Active Substance: OMALIZUMAB
     Route: 058
     Dates: start: 20141230
  15. ADVAIR HFA [Concomitant]
     Active Substance: FLUTICASONE PROPIONATE\SALMETEROL XINAFOATE
  16. SPIRIVA [Concomitant]
     Active Substance: TIOTROPIUM BROMIDE MONOHYDRATE
  17. SINGULAIR [Concomitant]
     Active Substance: MONTELUKAST SODIUM
  18. COUMADIN [Concomitant]
     Active Substance: WARFARIN SODIUM
  19. AVAPRO [Concomitant]
     Active Substance: IRBESARTAN
  20. LOSARTAN POTASSIUM. [Concomitant]
     Active Substance: LOSARTAN POTASSIUM

REACTIONS (19)
  - Weight decreased [Unknown]
  - Back disorder [Unknown]
  - Respiratory rate increased [Unknown]
  - Limb injury [Unknown]
  - Sleep apnoea syndrome [Unknown]
  - Cardiac disorder [Unknown]
  - Gait disturbance [Unknown]
  - Choking [Unknown]
  - Peripheral swelling [Unknown]
  - Hypophagia [Unknown]
  - Mobility decreased [Unknown]
  - Fall [Unknown]
  - Diabetes mellitus [Unknown]
  - Blood pressure increased [Not Recovered/Not Resolved]
  - Movement disorder [Unknown]
  - Asthma [Unknown]
  - Sputum discoloured [Unknown]
  - General physical health deterioration [Unknown]
  - Infection [Unknown]

NARRATIVE: CASE EVENT DATE: 20130521
